FAERS Safety Report 20736113 (Version 2)
Quarter: 2022Q2

REPORT INFORMATION
  Report Type: Report from Study
  Country: US (occurrence: US)
  Receive Date: 20220421
  Receipt Date: 20220523
  Transmission Date: 20220721
  Serious: Yes (Other)
  Sender: FDA-Public Use
  Company Number: US-TAKEDA-2021TUS057613

PATIENT
  Age: 42 Year
  Sex: Male

DRUGS (4)
  1. LANADELUMAB [Suspect]
     Active Substance: LANADELUMAB
     Indication: Hereditary angioedema
     Dosage: UNK
     Route: 065
  2. CINRYZE [Suspect]
     Active Substance: HUMAN C1-ESTERASE INHIBITOR
     Indication: Hereditary angioedema
     Dosage: UNK
     Route: 065
  3. CINRYZE [Suspect]
     Active Substance: HUMAN C1-ESTERASE INHIBITOR
     Indication: Hereditary angioedema
     Dosage: UNK
     Route: 065
  4. CINRYZE [Suspect]
     Active Substance: HUMAN C1-ESTERASE INHIBITOR
     Indication: Hereditary angioedema
     Dosage: UNK
     Route: 065

REACTIONS (5)
  - Haematochezia [Unknown]
  - Corneal transplant [Not Recovered/Not Resolved]
  - Procedural pain [Not Recovered/Not Resolved]
  - COVID-19 [Recovered/Resolved]
  - Hereditary angioedema [Unknown]

NARRATIVE: CASE EVENT DATE: 20210913
